FAERS Safety Report 14137773 (Version 1)
Quarter: 2017Q4

REPORT INFORMATION
  Report Type: Spontaneous
  Country: DE (occurrence: DE)
  Receive Date: 20171027
  Receipt Date: 20171027
  Transmission Date: 20180321
  Serious: Yes (Other)
  Sender: FDA-Public Use
  Company Number: DE-009507513-1710DEU013223

PATIENT
  Sex: Female

DRUGS (1)
  1. KEYTRUDA [Suspect]
     Active Substance: PEMBROLIZUMAB
     Indication: NON-SMALL CELL LUNG CANCER
     Dosage: DOSAGE ADAPTED TO BODYWEIGHT

REACTIONS (4)
  - Vasculitis cerebral [Unknown]
  - Cerebellar infarction [Unknown]
  - Cerebral infarction [Unknown]
  - Malignant neoplasm progression [Unknown]
